FAERS Safety Report 21131865 (Version 2)
Quarter: 2022Q4

REPORT INFORMATION
  Report Type: Spontaneous
  Country: DE (occurrence: None)
  Receive Date: 20220726
  Receipt Date: 20221014
  Transmission Date: 20230113
  Serious: Yes (Life-Threatening, Hospitalization, Other)
  Sender: FDA-Public Use
  Company Number: DE-ROCHE-3147235

PATIENT
  Age: 60 Year
  Sex: Male
  Weight: 80 kg

DRUGS (3)
  1. TECENTRIQ [Suspect]
     Active Substance: ATEZOLIZUMAB
     Indication: Small cell lung cancer
     Route: 041
  2. PREDNISOLONE [Concomitant]
     Active Substance: PREDNISOLONE
     Indication: Prophylaxis
     Dosage: ON DAYS DURING CHEMOTHERAPY
     Route: 042
     Dates: start: 20211201, end: 20220317
  3. AKYNZEO [Concomitant]
     Indication: Prophylaxis
     Dosage: FIRST DAY OF CHEMOTHERAPY
     Route: 048
     Dates: start: 20211201, end: 20220315

REACTIONS (2)
  - Immune-mediated lung disease [Recovered/Resolved]
  - Hepatic neoplasm [Unknown]

NARRATIVE: CASE EVENT DATE: 20220101
